FAERS Safety Report 11120478 (Version 2)
Quarter: 2015Q2

REPORT INFORMATION
  Report Type: Report from Study
  Country: US (occurrence: US)
  Receive Date: 20150518
  Receipt Date: 20150602
  Transmission Date: 20150821
  Serious: Yes (Hospitalization, Other)
  Sender: FDA-Public Use
  Company Number: PHEH2015US009013

PATIENT
  Age: 49 Year
  Sex: Female
  Weight: 101.13 kg

DRUGS (1)
  1. GILENYA [Suspect]
     Active Substance: FINGOLIMOD HYDROCHLORIDE
     Indication: MULTIPLE SCLEROSIS
     Dosage: 0.5 MG, QD FOR 28 DAYS
     Route: 048

REACTIONS (5)
  - Hypotension [Unknown]
  - Abdominal pain [Unknown]
  - Chromaturia [Unknown]
  - Confusional state [Unknown]
  - Loss of consciousness [Unknown]

NARRATIVE: CASE EVENT DATE: 201501
